FAERS Safety Report 9963152 (Version 1)
Quarter: 2014Q1

REPORT INFORMATION
  Report Type: Report from Study
  Country: US (occurrence: US)
  Receive Date: 20140305
  Receipt Date: 20140305
  Transmission Date: 20141002
  Serious: No
  Sender: FDA-Public Use
  Company Number: US-ABBVIE-13P-163-1117564-00

PATIENT
  Sex: Female

DRUGS (2)
  1. HUMIRA [Suspect]
     Indication: COLITIS ULCERATIVE
     Dates: start: 201305
  2. FOSAMAX [Concomitant]
     Indication: BONE DISORDER
     Dosage: DAILY

REACTIONS (2)
  - Upper respiratory tract infection [Not Recovered/Not Resolved]
  - Headache [Not Recovered/Not Resolved]
